FAERS Safety Report 25482348 (Version 1)
Quarter: 2025Q2

REPORT INFORMATION
  Report Type: Report from Study
  Country: US (occurrence: US)
  Receive Date: 20250626
  Receipt Date: 20250626
  Transmission Date: 20250717
  Serious: Yes (Disabling)
  Sender: ABBVIE
  Company Number: US-ABBVIE-6339561

PATIENT
  Sex: Female

DRUGS (1)
  1. RINVOQ [Suspect]
     Active Substance: UPADACITINIB
     Indication: Crohn^s disease
     Route: 048

REACTIONS (6)
  - Disability [Not Recovered/Not Resolved]
  - Drug ineffective [Not Recovered/Not Resolved]
  - Illness [Not Recovered/Not Resolved]
  - Mental disorder [Not Recovered/Not Resolved]
  - Injury [Not Recovered/Not Resolved]
  - Gait disturbance [Not Recovered/Not Resolved]
